FAERS Safety Report 13064810 (Version 1)
Quarter: 2016Q4

REPORT INFORMATION
  Report Type: Spontaneous
  Country: GB (occurrence: GB)
  Receive Date: 20161227
  Receipt Date: 20161227
  Transmission Date: 20170207
  Serious: Yes (Disabling)
  Sender: FDA-Public Use
  Company Number: GB-JNJFOC-20161218415

PATIENT
  Age: 62 Year
  Sex: Male
  Weight: 89 kg

DRUGS (4)
  1. LANSOPRAZOLE. [Concomitant]
     Active Substance: LANSOPRAZOLE
     Route: 065
  2. LANTUS [Concomitant]
     Active Substance: INSULIN GLARGINE
     Route: 065
  3. TRAMADOL. [Concomitant]
     Active Substance: TRAMADOL
     Route: 065
  4. CANAGLIFLOZIN [Suspect]
     Active Substance: CANAGLIFLOZIN
     Indication: TYPE 2 DIABETES MELLITUS
     Dosage: DOSE: 100 (UNITS UNSPECIFIED)
     Route: 048
     Dates: start: 20151015, end: 20161205

REACTIONS (4)
  - Muscular weakness [Not Recovered/Not Resolved]
  - Off label use [Unknown]
  - Inappropriate schedule of drug administration [Unknown]
  - Muscle atrophy [Not Recovered/Not Resolved]

NARRATIVE: CASE EVENT DATE: 201511
